FAERS Safety Report 9939917 (Version 1)
Quarter: 2014Q1

REPORT INFORMATION
  Report Type: Report from Study
  Country: US (occurrence: US)
  Receive Date: 20140303
  Receipt Date: 20140303
  Transmission Date: 20141002
  Serious: No
  Sender: FDA-Public Use
  Company Number: US-ABBVIE-13P-163-1037439-00

PATIENT
  Sex: Female
  Weight: 54.93 kg

DRUGS (4)
  1. HUMIRA [Suspect]
     Indication: RHEUMATOID ARTHRITIS
     Dates: start: 2009, end: 20130101
  2. PLAQUENIL [Concomitant]
     Indication: RHEUMATOID ARTHRITIS
  3. MULTIVITAMIN [Concomitant]
     Indication: SUPPLEMENTATION THERAPY
  4. SYMBICORT [Concomitant]
     Indication: ASTHMA

REACTIONS (3)
  - Weight decreased [Not Recovered/Not Resolved]
  - Pruritus [Not Recovered/Not Resolved]
  - Dermatitis acneiform [Not Recovered/Not Resolved]
